FAERS Safety Report 7080120-6 (Version None)
Quarter: 2010Q4

REPORT INFORMATION
  Report Type: 
  Country: None (occurrence: None)
  Receive Date: 20101102
  Receipt Date: 20101025
  Transmission Date: 20110411
  Serious: Yes (Hospitalization, Other)
  Sender: FDA-Public Use
  Company Number: FR-GILEAD-2010-0032937

PATIENT
  Sex: Male

DRUGS (6)
  1. HEPSERA [Suspect]
     Indication: HEPATITIS B
     Route: 048
     Dates: start: 20060101, end: 20091201
  2. MICARDIS [Concomitant]
     Indication: HYPERTENSION
     Route: 048
  3. FOSAVANCE [Concomitant]
     Indication: OSTEOPOROSIS
     Route: 048
  4. SEROPLEX [Concomitant]
     Indication: DEPRESSION
     Route: 048
  5. RIVOTRIL [Concomitant]
     Indication: ANXIETY
     Route: 048
  6. CACIT VITAMIN D3 [Concomitant]
     Indication: VITAMIN D DEFICIENCY
     Route: 048

REACTIONS (6)
  - FANCONI SYNDROME ACQUIRED [None]
  - NEPHROANGIOSCLEROSIS [None]
  - NEPHROPATHY TOXIC [None]
  - OSTEOPOROTIC FRACTURE [None]
  - RENAL TUBULAR NECROSIS [None]
  - TUBULOINTERSTITIAL NEPHRITIS [None]
